FAERS Safety Report 6824170-0 (Version None)
Quarter: 2010Q3

REPORT INFORMATION
  Report Type: 
  Country: None (occurrence: None)
  Receive Date: 20100708
  Receipt Date: 20061015
  Transmission Date: 20110219
  Serious: No
  Sender: FDA-Public Use
  Company Number: US-PFIZER INC-2006127999

PATIENT
  Sex: Female
  Weight: 77.11 kg

DRUGS (7)
  1. CHANTIX [Suspect]
     Indication: SMOKING CESSATION THERAPY
     Dates: start: 20061012
  2. NEXIUM [Concomitant]
     Indication: GASTRIC DISORDER
  3. HYDROCODONE BITARTRATE [Concomitant]
  4. XANAX [Concomitant]
  5. PREDNISONE [Concomitant]
  6. IMURAN [Concomitant]
  7. ZOLOFT [Concomitant]

REACTIONS (2)
  - ABDOMINAL DISTENSION [None]
  - NAUSEA [None]
